FAERS Safety Report 17555365 (Version 1)
Quarter: 2020Q1

REPORT INFORMATION
  Report Type: Spontaneous
  Country: US (occurrence: US)
  Receive Date: 20200318
  Receipt Date: 20200318
  Transmission Date: 20200409
  Serious: Yes (Hospitalization)
  Sender: FDA-Public Use
  Company Number: US-VERTEX PHARMACEUTICALS-2020-005534

PATIENT
  Age: 10 Year
  Sex: Female

DRUGS (1)
  1. ORKAMBI [Suspect]
     Active Substance: IVACAFTOR\LUMACAFTOR
     Indication: CYSTIC FIBROSIS
     Dosage: 100MG LUMACAFTOR/125MG IVACAFTOR
     Route: 048
     Dates: start: 2019

REACTIONS (3)
  - Product dose omission [Not Recovered/Not Resolved]
  - Insurance issue [Not Recovered/Not Resolved]
  - Infective pulmonary exacerbation of cystic fibrosis [Unknown]

NARRATIVE: CASE EVENT DATE: 20200201
